FAERS Safety Report 11513919 (Version 1)
Quarter: 2015Q3

REPORT INFORMATION
  Report Type: Spontaneous
  Country: US (occurrence: US)
  Receive Date: 20150903
  Receipt Date: 20150903
  Transmission Date: 20151125
  Serious: No
  Sender: FDA-Public Use
  Company Number: US-ELI_LILLY_AND_COMPANY-US201210008013

PATIENT
  Sex: Female

DRUGS (9)
  1. TYLENOL [Concomitant]
     Active Substance: ACETAMINOPHEN
  2. FOLIC ACID. [Concomitant]
     Active Substance: FOLIC ACID
  3. CYMBALTA [Suspect]
     Active Substance: DULOXETINE HYDROCHLORIDE
     Indication: FIBROMYALGIA
     Dosage: 120 MG, QD
     Route: 048
  4. FIORICET [Concomitant]
     Active Substance: ACETAMINOPHEN\BUTALBITAL\CAFFEINE
  5. ELAVIL [Concomitant]
     Active Substance: AMITRIPTYLINE HYDROCHLORIDE
     Dosage: UNK
     Dates: end: 20121011
  6. CALCIUM CARBONATE. [Concomitant]
     Active Substance: CALCIUM CARBONATE
  7. PROMETHAZINE [Concomitant]
     Active Substance: PROMETHAZINE\PROMETHAZINE HYDROCHLORIDE
  8. LAMICTAL [Concomitant]
     Active Substance: LAMOTRIGINE
  9. PRENATAL VITAMINS                  /01549301/ [Concomitant]
     Active Substance: VITAMINS

REACTIONS (2)
  - Bipolar disorder [Unknown]
  - Exposure during pregnancy [Unknown]
